APPROVED DRUG PRODUCT: THEOPHYLLINE-SR
Active Ingredient: THEOPHYLLINE
Strength: 300MG
Dosage Form/Route: CAPSULE, EXTENDED RELEASE;ORAL
Application: A088255 | Product #001
Applicant: RP SCHERER NORTH AMERICA DIV RP SCHERER CORP
Approved: Jun 12, 1986 | RLD: No | RS: No | Type: DISCN